FAERS Safety Report 5027507-0 (Version None)
Quarter: 2006Q2

REPORT INFORMATION
  Report Type: 
  Country: None (occurrence: None)
  Receive Date: 20060501
  Receipt Date: 20060201
  Transmission Date: 20061013
  Serious: No
  Sender: FDA-Public Use
  Company Number: 2006PV008002

PATIENT
  Age: 64 Year
  Sex: Female
  Weight: 119.296 kg

DRUGS (4)
  1. SYMLIN [Suspect]
     Indication: DIABETES MELLITUS NON-INSULIN-DEPENDENT
     Dosage: SEE IMAGE
     Route: 058
     Dates: start: 20060123, end: 20060129
  2. SYMLIN [Suspect]
     Indication: DIABETES MELLITUS NON-INSULIN-DEPENDENT
     Dosage: SEE IMAGE
     Route: 058
     Dates: start: 20060130
  3. HUMALOG MIX 75/25 [Concomitant]
  4. HUMALOG [Concomitant]

REACTIONS (2)
  - DECREASED APPETITE [None]
  - DIARRHOEA [None]
